FAERS Safety Report 14054119 (Version 1)
Quarter: 2017Q4

REPORT INFORMATION
  Report Type: Spontaneous
  Country: US (occurrence: None)
  Receive Date: 20171006
  Receipt Date: 20171006
  Transmission Date: 20180321
  Serious: Yes (Hospitalization)
  Sender: FDA-Public Use
  Company Number: None

PATIENT
  Age: 60 Year
  Sex: Female

DRUGS (28)
  1. ADVAIR DISKU [Concomitant]
  2. DICLOFENAC [Concomitant]
     Active Substance: DICLOFENAC
  3. DIOVAN [Concomitant]
     Active Substance: VALSARTAN
  4. HYDROCO/APAP [Concomitant]
     Active Substance: ACETAMINOPHEN\HYDROCODONE
  5. PEPCID [Concomitant]
     Active Substance: FAMOTIDINE
  6. XANAX [Concomitant]
     Active Substance: ALPRAZOLAM
  7. ARAVA [Concomitant]
     Active Substance: LEFLUNOMIDE
  8. LORTAB [Concomitant]
     Active Substance: ACETAMINOPHEN\HYDROCODONE BITARTRATE
  9. SYMBICORT [Concomitant]
     Active Substance: BUDESONIDE\FORMOTEROL FUMARATE DIHYDRATE
  10. TRICOR [Concomitant]
     Active Substance: FENOFIBRATE
  11. CELEXA [Concomitant]
     Active Substance: CITALOPRAM HYDROBROMIDE
  12. NAPROXEN. [Suspect]
     Active Substance: NAPROXEN
     Indication: RHEUMATOID ARTHRITIS
  13. BUPROPION. [Concomitant]
     Active Substance: BUPROPION
  14. PREDNISONE. [Concomitant]
     Active Substance: PREDNISONE
  15. ALBUTEROL. [Concomitant]
     Active Substance: ALBUTEROL
  16. AMLODIPINE [Concomitant]
     Active Substance: AMLODIPINE BESYLATE
  17. FENOFIBRATE. [Concomitant]
     Active Substance: FENOFIBRATE
  18. OXYCODONE [Concomitant]
     Active Substance: OXYCODONE
  19. SPIRIVA [Concomitant]
     Active Substance: TIOTROPIUM BROMIDE MONOHYDRATE
  20. TRAZODONE [Concomitant]
     Active Substance: TRAZODONE HYDROCHLORIDE
  21. ALPRAZOLAM. [Concomitant]
     Active Substance: ALPRAZOLAM
  22. LEXAPRO [Concomitant]
     Active Substance: ESCITALOPRAM OXALATE
  23. VITAMIN D3 [Concomitant]
     Active Substance: CHOLECALCIFEROL
  24. ALBUTEROL NEB [Concomitant]
  25. DIFLUCAN [Concomitant]
     Active Substance: FLUCONAZOLE
  26. ENBREL [Concomitant]
     Active Substance: ETANERCEPT
  27. PERCOCET [Concomitant]
     Active Substance: ACETAMINOPHEN\OXYCODONE HYDROCHLORIDE
  28. RISPERDAL [Concomitant]
     Active Substance: RISPERIDONE

REACTIONS (1)
  - Gastrointestinal haemorrhage [None]

NARRATIVE: CASE EVENT DATE: 201709
